FAERS Safety Report 6122577-0 (Version None)
Quarter: 2009Q1

REPORT INFORMATION
  Report Type: 
  Country: None (occurrence: None)
  Receive Date: 20090316
  Receipt Date: 20090316
  Transmission Date: 20090719
  Serious: No
  Sender: FDA-Public Use
  Company Number: None

PATIENT
  Sex: Female
  Weight: 47.6277 kg

DRUGS (2)
  1. LEVAQUIN [Suspect]
     Indication: SINUSITIS
     Dosage: 500 MG 1 DAILY PO
     Route: 048
     Dates: start: 20060612, end: 20060615
  2. NSAID [Concomitant]

REACTIONS (19)
  - ABASIA [None]
  - BACK DISORDER [None]
  - DISTURBANCE IN ATTENTION [None]
  - DYSPEPSIA [None]
  - FATIGUE [None]
  - INSOMNIA [None]
  - INTERVERTEBRAL DISC PROTRUSION [None]
  - JOINT EFFUSION [None]
  - JOINT SWELLING [None]
  - LIGAMENT RUPTURE [None]
  - MEMORY IMPAIRMENT [None]
  - METABOLIC DISORDER [None]
  - MYALGIA [None]
  - NERVOUS SYSTEM DISORDER [None]
  - PAIN [None]
  - SKIN DISORDER [None]
  - SWELLING [None]
  - TENDON DISORDER [None]
  - WEIGHT DECREASED [None]
